FAERS Safety Report 7374559-9 (Version None)
Quarter: 2011Q1

REPORT INFORMATION
  Report Type: 
  Country: None (occurrence: None)
  Receive Date: 20110325
  Receipt Date: 20100315
  Transmission Date: 20110831
  Serious: No
  Sender: FDA-Public Use
  Company Number: US-MYLANLABS-2010S1004581

PATIENT
  Age: 68 Year
  Sex: Female
  Weight: 89.81 kg

DRUGS (6)
  1. GABAPENTIN [Concomitant]
  2. OXYCODONE [Concomitant]
     Dates: start: 20100310
  3. FIORICET [Concomitant]
  4. FENTANYL-100 [Suspect]
     Indication: CHRONIC PAROXYSMAL HEMICRANIA
     Dosage: Q72H
     Route: 062
     Dates: start: 20100310
  5. INDOMETHACIN [Concomitant]
  6. ALENDRONATE [Concomitant]

REACTIONS (2)
  - TREMOR [None]
  - NEUROPATHY PERIPHERAL [None]
